FAERS Safety Report 21513492 (Version 1)
Quarter: 2022Q4

REPORT INFORMATION
  Report Type: Spontaneous
  Country: US (occurrence: None)
  Receive Date: 20221026
  Receipt Date: 20221026
  Transmission Date: 20230113
  Serious: No
  Sender: FDA-Public Use
  Company Number: None

PATIENT
  Age: 26 Year
  Sex: Female
  Weight: 97.07 kg

DRUGS (1)
  1. TRUDHESA [Suspect]
     Active Substance: DIHYDROERGOTAMINE MESYLATE
     Dates: start: 20220915, end: 20220922

REACTIONS (2)
  - Nasal congestion [None]
  - Dyspnoea [None]

NARRATIVE: CASE EVENT DATE: 20220915
